FAERS Safety Report 4974412-1 (Version None)
Quarter: 2006Q2

REPORT INFORMATION
  Report Type: 
  Country: None (occurrence: None)
  Receive Date: 20060410
  Receipt Date: 20060329
  Transmission Date: 20061013
  Serious: Yes (Death, Hospitalization)
  Sender: FDA-Public Use
  Company Number: HQWYE353902NOV05

PATIENT
  Age: 44 Year
  Sex: Female

DRUGS (10)
  1. MYLOTARG [Suspect]
     Indication: ACUTE MYELOID LEUKAEMIA RECURRENT
     Dosage: A SINGLE 9 MG/M^2 DOSE
     Route: 041
     Dates: start: 20050928, end: 20050928
  2. LAMIVUDINE [Concomitant]
  3. SULFAMETHOXAZOLE + TRIMETHOPRIM [Concomitant]
  4. DIFLUCAN [Concomitant]
  5. UNSPECIFIED H2 RECEPTOR ANTAGONIST [Concomitant]
  6. BUSULFAN (BUSULFAN) [Suspect]
     Indication: BONE MARROW CONDITIONING REGIMEN
     Dates: start: 20051201
  7. CIPROFLOXACIN HYDROCHLORIDE [Concomitant]
  8. ZOLPIDEM TARTRATE [Concomitant]
  9. MAXIPIME [Concomitant]
  10. FLUDARABINE PHOSPHATE [Concomitant]

REACTIONS (10)
  - ACUTE MYELOID LEUKAEMIA [None]
  - FEBRILE NEUTROPENIA [None]
  - FIBRIN DEGRADATION PRODUCTS INCREASED [None]
  - HYPERKALAEMIA [None]
  - HYPONATRAEMIA [None]
  - INTERSTITIAL LUNG DISEASE [None]
  - MALIGNANT NEOPLASM PROGRESSION [None]
  - PROCTALGIA [None]
  - VENOOCCLUSIVE LIVER DISEASE [None]
  - WHITE BLOOD CELL COUNT DECREASED [None]
